FAERS Safety Report 19826982 (Version 8)
Quarter: 2024Q1

REPORT INFORMATION
  Report Type: Other
  Country: JP (occurrence: JP)
  Receive Date: 20210914
  Receipt Date: 20240101
  Transmission Date: 20240410
  Serious: Yes (Hospitalization, Other)
  Sender: FDA-Public Use
  Company Number: JP-CHUGAI-2021002365

PATIENT
  Age: 67 Year
  Sex: Female
  Weight: 50.2 kg

DRUGS (14)
  1. ENSPRYNG [Suspect]
     Active Substance: SATRALIZUMAB-MWGE
     Indication: Neuromyelitis optica spectrum disorder
     Dosage: 120 MILLIGRAM, ONCE/2WEEKS
     Route: 058
     Dates: start: 20201119, end: 20201217
  2. ENSPRYNG [Suspect]
     Active Substance: SATRALIZUMAB-MWGE
     Dosage: 120 MILLIGRAM, ONCE/4WEEKS
     Route: 058
     Dates: start: 20210114, end: 20210701
  3. ENSPRYNG [Suspect]
     Active Substance: SATRALIZUMAB-MWGE
     Dosage: 120 MILLIGRAM, ONCE/8WEEKS
     Route: 058
     Dates: start: 20210820, end: 20211015
  4. ENSPRYNG [Suspect]
     Active Substance: SATRALIZUMAB-MWGE
     Dosage: 120 MILLIGRAM, ONCE/4WEEKS
     Route: 058
     Dates: start: 20211111, end: 20211209
  5. ENSPRYNG [Suspect]
     Active Substance: SATRALIZUMAB-MWGE
     Dosage: 120 MILLIGRAM, ONCE/4WEEKS
     Route: 058
     Dates: start: 20220203, end: 20220915
  6. ENSPRYNG [Suspect]
     Active Substance: SATRALIZUMAB-MWGE
     Dosage: 120 MILLIGRAM, ONCE/4WEEKS
     Route: 058
     Dates: start: 20221115
  7. PREDNISOLONE [Suspect]
     Active Substance: PREDNISOLONE
     Indication: Product used for unknown indication
     Dosage: 20 MILLIGRAM/DAY
     Route: 048
     Dates: start: 20201119, end: 20210531
  8. PREDNISOLONE [Suspect]
     Active Substance: PREDNISOLONE
     Dosage: 19 MILLIGRAM/DAY
     Route: 048
  9. PREDNISOLONE [Suspect]
     Active Substance: PREDNISOLONE
     Dosage: 14 MILLIGRAM/DAY; ROUTE OF ADMINISTRATION: GASTRIC FISTULA, EPILESIONAL USE
     Route: 050
  10. PREDNISOLONE [Suspect]
     Active Substance: PREDNISOLONE
     Dosage: 11 MILLIGRAM/DAY; ROUTE OF ADMINISTRATION: GASTRIC FISTULA, EPILESIONAL USE
     Route: 050
  11. PREDNISOLONE [Suspect]
     Active Substance: PREDNISOLONE
     Dosage: 15 MILLIGRAM/DAY; ROUTE OF ADMINISTRATION: GASTRIC FISTULA, EPILESIONAL USE
     Route: 050
  12. PREDNISOLONE [Suspect]
     Active Substance: PREDNISOLONE
     Dosage: 10 MILLIGRAM/DAY; ROUTE OF ADMINISTRATION: GASTRIC FISTULA, EPILESIONAL USE
     Route: 050
  13. AZATHIOPRINE [Concomitant]
     Active Substance: AZATHIOPRINE
     Indication: Neuromyelitis optica spectrum disorder
     Route: 065
  14. AZATHIOPRINE [Concomitant]
     Active Substance: AZATHIOPRINE
     Route: 065
     Dates: start: 20201119, end: 20201127

REACTIONS (8)
  - Pneumonia aspiration [Recovered/Resolved]
  - Pleurisy [Recovered/Resolved]
  - Bile duct stone [Recovered/Resolved]
  - Cholangitis acute [Recovered/Resolved]
  - Fracture [Recovered/Resolved]
  - Pneumonia aspiration [Recovering/Resolving]
  - Sepsis [Recovered/Resolved]
  - Infectious pleural effusion [Recovered/Resolved]

NARRATIVE: CASE EVENT DATE: 20210129
